FAERS Safety Report 24461582 (Version 1)
Quarter: 2024Q4

REPORT INFORMATION
  Report Type: Spontaneous
  Country: RU (occurrence: RU)
  Receive Date: 20241018
  Receipt Date: 20241018
  Transmission Date: 20250115
  Serious: No
  Sender: ROCHE
  Company Number: RU-ROCHE-3551301

PATIENT
  Age: 46 Year
  Sex: Female

DRUGS (4)
  1. MABTHERA [Suspect]
     Active Substance: RITUXIMAB
     Indication: Rheumatoid arthritis
     Route: 065
  2. RITUXIMAB [Concomitant]
     Active Substance: RITUXIMAB
  3. GOLIMUMAB [Concomitant]
     Active Substance: GOLIMUMAB
     Route: 058
  4. OLOKIZUMAB [Concomitant]
     Active Substance: OLOKIZUMAB
     Dates: start: 202211

REACTIONS (1)
  - Rheumatoid arthritis [Unknown]
